FAERS Safety Report 6079942-X (Version None)
Quarter: 2009Q1

REPORT INFORMATION
  Report Type: 
  Country: None (occurrence: None)
  Receive Date: 20090217
  Receipt Date: 20090205
  Transmission Date: 20090719
  Serious: Yes (Hospitalization)
  Sender: FDA-Public Use
  Company Number: PHHY2009JP00906

PATIENT
  Age: 59 Year
  Sex: Male

DRUGS (6)
  1. DIOVAN [Suspect]
     Indication: HYPERTENSION
     Dosage: 80 MG, QD
     Route: 048
     Dates: start: 20080601, end: 20081228
  2. LOCHOL [Concomitant]
     Dosage: 30 MG PER DAY
     Dates: start: 20080101
  3. LUPRAC [Concomitant]
     Dosage: 4 MG PER DAY
     Route: 048
     Dates: start: 20080101
  4. CALBLOCK [Concomitant]
     Dosage: 16 MG PER DAY
     Route: 048
     Dates: start: 20080101
  5. KALIMATE [Concomitant]
     Dosage: UNK
     Route: 048
     Dates: start: 20080101
  6. METHYLPREDNISOLONE 4MG TAB [Concomitant]
     Dosage: UNK
     Dates: end: 20081226

REACTIONS (4)
  - BRONCHOALVEOLAR LAVAGE [None]
  - BRONCHOSCOPY [None]
  - INTERSTITIAL LUNG DISEASE [None]
  - LYMPHOCYTE STIMULATION TEST POSITIVE [None]
